FAERS Safety Report 9702908 (Version 1)
Quarter: 2013Q4

REPORT INFORMATION
  Report Type: Spontaneous
  Country: US (occurrence: US)
  Receive Date: 20131121
  Receipt Date: 20131121
  Transmission Date: 20140711
  Serious: Yes (Hospitalization, Other)
  Sender: FDA-Public Use
  Company Number: US-GILEAD-2013-0088446

PATIENT
  Age: 78 Year
  Sex: Female

DRUGS (4)
  1. LETAIRIS [Suspect]
     Indication: PRODUCT USED FOR UNKNOWN INDICATION
     Dosage: 5 MG, UNK
     Route: 048
     Dates: start: 20111228
  2. LASIX                              /00032601/ [Concomitant]
  3. HYDRALAZINE [Concomitant]
  4. PLAVIX [Concomitant]

REACTIONS (4)
  - Chest pain [Recovered/Resolved]
  - Peripheral arterial occlusive disease [Unknown]
  - Nasopharyngitis [Unknown]
  - Upper respiratory tract congestion [Unknown]
